FAERS Safety Report 6415362-3 (Version None)
Quarter: 2009Q4

REPORT INFORMATION
  Report Type: 
  Country: None (occurrence: None)
  Receive Date: 20091027
  Receipt Date: 20091013
  Transmission Date: 20100525
  Serious: Yes (Other)
  Sender: FDA-Public Use
  Company Number: IE-CELGENEUS-229-20484-09101839

PATIENT
  Age: 39 Year
  Sex: Female

DRUGS (8)
  1. TINZAPARIN [Suspect]
     Indication: DEEP VEIN THROMBOSIS
     Route: 058
  2. TINZAPARIN [Suspect]
     Route: 058
  3. TINZAPARIN [Suspect]
     Route: 058
  4. CISPLATIN [Suspect]
     Route: 065
  5. WARFARIN SODIUM [Concomitant]
     Indication: DEEP VEIN THROMBOSIS
     Route: 065
  6. TAXOL [Concomitant]
     Route: 065
  7. CARBOPLATIN [Concomitant]
     Route: 065
  8. ENOXAPARIN SODIUM [Concomitant]
     Indication: DEEP VEIN THROMBOSIS
     Route: 065

REACTIONS (3)
  - DEEP VEIN THROMBOSIS [None]
  - METASTATIC NEOPLASM [None]
  - PULMONARY EMBOLISM [None]
